FAERS Safety Report 23926545 (Version 2)
Quarter: 2024Q2

REPORT INFORMATION
  Report Type: Report from Study
  Country: CA (occurrence: CA)
  Receive Date: 20240531
  Receipt Date: 20240618
  Transmission Date: 20240717
  Serious: Yes (Death, Life-Threatening, Hospitalization)
  Sender: FDA-Public Use
  Company Number: CA-PFIZER INC-PV202400071333

PATIENT
  Age: 70 Year
  Sex: Male
  Weight: 47.1 kg

DRUGS (3)
  1. METHYLPREDNISOLONE [Suspect]
     Active Substance: METHYLPREDNISOLONE
     Dosage: UNK
     Dates: start: 20240109, end: 20240111
  2. INVESTIGATIONAL PRODUCT [Suspect]
     Active Substance: INVESTIGATIONAL PRODUCT
     Indication: Squamous cell carcinoma of head and neck
     Dosage: UNK
     Dates: start: 20230823, end: 20231227
  3. RETIFANLIMAB [Suspect]
     Active Substance: RETIFANLIMAB
     Indication: Squamous cell carcinoma of head and neck
     Dosage: 500 MG
     Route: 042
     Dates: start: 20230823, end: 20231213

REACTIONS (1)
  - Pneumonia [Fatal]

NARRATIVE: CASE EVENT DATE: 20240109
